FAERS Safety Report 6217170-5 (Version None)
Quarter: 2009Q2

REPORT INFORMATION
  Report Type: 
  Country: None (occurrence: None)
  Receive Date: 20090608
  Receipt Date: 20090525
  Transmission Date: 20091009
  Serious: No
  Sender: FDA-Public Use
  Company Number: SE-DENTSPLY-2009-0037-EUR

PATIENT
  Sex: Female

DRUGS (1)
  1. CITANEST [Suspect]

REACTIONS (2)
  - BRONCHOSPASM [None]
  - LOSS OF CONSCIOUSNESS [None]
